FAERS Safety Report 10146597 (Version 1)
Quarter: 2014Q2

REPORT INFORMATION
  Report Type: Spontaneous
  Country: US (occurrence: None)
  Receive Date: 20140430
  Receipt Date: 20140430
  Transmission Date: 20141212
  Serious: Yes (Hospitalization)
  Sender: FDA-Public Use
  Company Number: None

PATIENT
  Age: 76 Year
  Sex: Female

DRUGS (7)
  1. WARFARIN [Suspect]
     Indication: ATRIAL FIBRILLATION
     Dosage: 2.5 MG + 1.25 MG ALTERNATING, DAILY, PO
     Route: 048
     Dates: end: 20140130
  2. CALCIUM + VITAMIN D [Concomitant]
  3. HYDROCODONE [Concomitant]
  4. ACETAMINOPHEN [Concomitant]
  5. ISOSORBIDE MONONITRATE [Concomitant]
  6. METOPROLOL TARTRATE [Concomitant]
  7. WARFARIN [Concomitant]

REACTIONS (3)
  - International normalised ratio increased [None]
  - Rectal haemorrhage [None]
  - International normalised ratio fluctuation [None]
